FAERS Safety Report 11810496 (Version 2)
Quarter: 2016Q1

REPORT INFORMATION
  Report Type: Spontaneous
  Country: IT (occurrence: IT)
  Receive Date: 20151208
  Receipt Date: 20160119
  Transmission Date: 20160525
  Serious: Yes (Hospitalization)
  Sender: FDA-Public Use
  Company Number: IT-PFIZER INC-2015415181

PATIENT
  Age: 83 Year
  Sex: Female

DRUGS (6)
  1. TRIATEC [Suspect]
     Active Substance: RAMIPRIL
     Indication: HYPERTENSION
     Dosage: 10 MG, DAILY
     Route: 048
     Dates: start: 20150101, end: 20151106
  2. LASIX [Concomitant]
     Active Substance: FUROSEMIDE
     Dosage: UNK
  3. ATENOL [Concomitant]
     Active Substance: ATENOLOL
     Dosage: UNK
  4. CARDURA [Concomitant]
     Active Substance: DOXAZOSIN MESYLATE
     Dosage: UNK
  5. LUVION /00252501/ [Concomitant]
     Active Substance: CANRENONE
     Dosage: UNK
  6. ZYLORIC [Concomitant]
     Active Substance: ALLOPURINOL
     Dosage: UNK

REACTIONS (5)
  - Syncope [Recovered/Resolved]
  - Hypotension [Unknown]
  - Presyncope [Recovered/Resolved]
  - Hyperhidrosis [Unknown]
  - Incontinence [Unknown]

NARRATIVE: CASE EVENT DATE: 20151106
